FAERS Safety Report 16909798 (Version 2)
Quarter: 2019Q4

REPORT INFORMATION
  Report Type: Spontaneous
  Country: PE (occurrence: PE)
  Receive Date: 20191011
  Receipt Date: 20191212
  Transmission Date: 20200122
  Serious: Yes (Death, Hospitalization, Other)
  Sender: FDA-Public Use
  Company Number: PE-BIOMARINAP-PE-2019-126158

PATIENT
  Age: 5 Year
  Sex: Male
  Weight: 23.9 kg

DRUGS (6)
  1. ALDURAZYME [Suspect]
     Active Substance: LARONIDASE
     Indication: MUCOPOLYSACCHARIDOSIS I
     Dosage: 0.58 MILLIGRAM/KILOGRAM, QW
     Route: 042
     Dates: start: 201606
  2. CARVEDILOL. [Concomitant]
     Active Substance: CARVEDILOL
     Indication: CARDIOMYOPATHY
     Dosage: UNK
  3. AMIODARONE [Concomitant]
     Active Substance: AMIODARONE
     Indication: ARRHYTHMIA
  4. FUROSEMIDE. [Concomitant]
     Active Substance: FUROSEMIDE
     Indication: CARDIOMYOPATHY
     Dosage: UNK
  5. AMIODARONE [Concomitant]
     Active Substance: AMIODARONE
     Indication: CARDIOMYOPATHY
     Dosage: UNK
     Dates: start: 20190211
  6. CAPTOPRIL. [Concomitant]
     Active Substance: CAPTOPRIL
     Indication: CARDIOMYOPATHY
     Dosage: UNK

REACTIONS (13)
  - Cardio-respiratory arrest [Fatal]
  - Fluid retention [Fatal]
  - Pneumonia [Unknown]
  - Oxygen saturation abnormal [Fatal]
  - Arrhythmia [Fatal]
  - Fatigue [Fatal]
  - Pharyngitis [Recovering/Resolving]
  - Weight increased [Fatal]
  - Swelling [Unknown]
  - Decreased appetite [Unknown]
  - Bronchial disorder [Fatal]
  - Dyspnoea [Fatal]
  - Bronchitis [Recovered/Resolved]

NARRATIVE: CASE EVENT DATE: 20190326
